FAERS Safety Report 8089725-7 (Version None)
Quarter: 2012Q1

REPORT INFORMATION
  Report Type: 
  Country: None (occurrence: None)
  Receive Date: 20120128
  Receipt Date: 20110713
  Transmission Date: 20120608
  Serious: No
  Sender: FDA-Public Use
  Company Number: US-ABBOTT-11P-163-0838546-00

PATIENT
  Age: 48 Year
  Sex: Female

DRUGS (8)
  1. NASACORT [Concomitant]
     Indication: HYPERSENSITIVITY
     Dosage: 1 SPRAY, EACH NOSTRIL, DAILY
  2. VIT E [Concomitant]
     Indication: VITAMIN SUPPLEMENTATION
  3. SYMBICORT [Concomitant]
     Indication: ASTHMA
  4. MULTI-VITAMINS [Concomitant]
     Indication: VITAMIN SUPPLEMENTATION
  5. FISH OIL [Concomitant]
     Indication: VITAMIN SUPPLEMENTATION
  6. VITAMIN D [Concomitant]
     Indication: VITAMIN SUPPLEMENTATION
  7. HUMIRA [Suspect]
     Indication: CROHN'S DISEASE
     Dosage: LOADING DOSE
     Route: 058
     Dates: start: 20110712
  8. PREDNISONE TAB [Concomitant]
     Indication: PRODUCT USED FOR UNKNOWN INDICATION
     Dosage: TAPERING, WILL BE OFF BY 19 JUL 2011

REACTIONS (1)
  - INJECTION SITE HAEMATOMA [None]
